FAERS Safety Report 4977685-4 (Version None)
Quarter: 2006Q2

REPORT INFORMATION
  Report Type: 
  Country: None (occurrence: None)
  Receive Date: 20060420
  Receipt Date: 20051027
  Transmission Date: 20061013
  Serious: No
  Sender: FDA-Public Use
  Company Number: US-GLAXOSMITHKLINE-A0579917A

PATIENT
  Age: 49 Year
  Sex: Male

DRUGS (2)
  1. ESKALITH CR [Suspect]
     Dosage: 450MG TWICE PER DAY
     Route: 048
  2. NO CONCURRENT MEDICATION [Concomitant]

REACTIONS (5)
  - DRUG ADMINISTRATION ERROR [None]
  - INSOMNIA [None]
  - LETHARGY [None]
  - NOCTURIA [None]
  - THIRST [None]
